FAERS Safety Report 23548383 (Version 3)
Quarter: 2024Q1

REPORT INFORMATION
  Report Type: Other
  Country: US (occurrence: US)
  Receive Date: 20240221
  Receipt Date: 20240311
  Transmission Date: 20240409
  Serious: No
  Sender: FDA-Public Use
  Company Number: US-TRAVERE-2024TVT00154

PATIENT
  Sex: Female
  Weight: 66.22 kg

DRUGS (16)
  1. FILSPARI [Suspect]
     Active Substance: SPARSENTAN
     Indication: IgA nephropathy
     Route: 048
     Dates: start: 20240205
  2. FILSPARI [Suspect]
     Active Substance: SPARSENTAN
     Route: 048
     Dates: start: 20240219
  3. BOTOX [Concomitant]
     Active Substance: ONABOTULINUMTOXINA
  4. MINOXIDIL [Concomitant]
     Active Substance: MINOXIDIL
  5. BUTENAFINE HCL [Concomitant]
  6. KETOCONAZOLE [Concomitant]
     Active Substance: KETOCONAZOLE
  7. MIRALAX [Concomitant]
     Active Substance: POLYETHYLENE GLYCOL 3350
  8. BENADRYL [Concomitant]
     Active Substance: DIPHENHYDRAMINE HYDROCHLORIDE
  9. VITAMIN K [Concomitant]
     Active Substance: PHYTONADIONE
  10. VITAMIN D3 [Concomitant]
     Active Substance: CHOLECALCIFEROL
  11. UBRELVY [Concomitant]
     Active Substance: UBROGEPANT
  12. LOVAZA [Concomitant]
     Active Substance: OMEGA-3-ACID ETHYL ESTERS
  13. FAMOTIDINE [Concomitant]
     Active Substance: FAMOTIDINE
  14. ESCITALOPRAM OXALATE [Concomitant]
     Active Substance: ESCITALOPRAM OXALATE
  15. FARXIGA [Concomitant]
     Active Substance: DAPAGLIFLOZIN PROPANEDIOL
  16. EMGALITY PEN 120 MG/ML PEN INJECTOR [Concomitant]

REACTIONS (3)
  - Fatigue [Unknown]
  - Somnolence [Unknown]
  - Protein total decreased [Unknown]
